FAERS Safety Report 21107650 (Version 1)
Quarter: 2022Q3

REPORT INFORMATION
  Report Type: 
  Country: US (occurrence: US)
  Receive Date: 20220720
  Receipt Date: 20220720
  Transmission Date: 20221026
  Serious: No
  Sender: FDA-Public Use
  Company Number: US-Fresenius Medical Care Renal Therapies Group-FMC-2206-000961

PATIENT
  Age: 77 Year
  Sex: Female
  Weight: 80.5 kg

DRUGS (2)
  1. DELFLEX WITH DEXTROSE 1.5% LOW MAGNESIUM LOW CALCIUM [Suspect]
     Active Substance: CALCIUM CHLORIDE\DEXTROSE\MAGNESIUM CHLORIDE\SODIUM CHLORIDE\SODIUM LACTATE
     Indication: End stage renal disease
     Dosage: 8 CYCLES WITH A FIRST FILL OF 2000ML AND 1100ML IN OTHER FILLS AND NO DAYTIME EXCHANGE.
     Route: 033
  2. DELFLEX WITH DEXTROSE 2.5% LOW MAGNESIUM LOW CALCIUM [Suspect]
     Active Substance: CALCIUM CHLORIDE\DEXTROSE\MAGNESIUM CHLORIDE\SODIUM CHLORIDE\SODIUM LACTATE
     Indication: End stage renal disease
     Dosage: 8 CYCLES WITH A FIRST FILL OF 2000ML AND 1100ML IN OTHER FILLS AND NO DAYTIME EXCHANGE.
     Route: 033

REACTIONS (2)
  - Burning sensation [Recovered/Resolved]
  - Pruritus [Not Recovered/Not Resolved]
